FAERS Safety Report 7803568-8 (Version None)
Quarter: 2011Q4

REPORT INFORMATION
  Report Type: 
  Country: None (occurrence: None)
  Receive Date: 20111009
  Receipt Date: 20110926
  Transmission Date: 20120403
  Serious: Yes (Death, Life-Threatening)
  Sender: FDA-Public Use
  Company Number: JP-MYLANLABS-2011S1016582

PATIENT
  Age: 71 Year
  Sex: Male
  Weight: 59.8 kg

DRUGS (10)
  1. CARBOPLATIN [Suspect]
     Indication: LUNG NEOPLASM MALIGNANT
     Route: 041
     Dates: start: 20110727, end: 20110727
  2. PACLITAXEL [Suspect]
     Indication: LUNG NEOPLASM MALIGNANT
     Route: 041
     Dates: start: 20110727, end: 20110727
  3. ALOXI [Concomitant]
     Indication: ANTIEMETIC SUPPORTIVE CARE
     Route: 042
     Dates: start: 20110727, end: 20110727
  4. ZANTAC [Concomitant]
     Indication: ALLERGY PROPHYLAXIS
     Route: 042
     Dates: start: 20110727, end: 20110727
  5. DEXAMETHASONE SODIUM PHOSPHATE [Concomitant]
     Indication: ANTIEMETIC SUPPORTIVE CARE
     Route: 042
     Dates: start: 20110727, end: 20110727
  6. EMEND /01627301/ [Concomitant]
     Indication: ANTIEMETIC SUPPORTIVE CARE
     Route: 048
     Dates: start: 20110727, end: 20110727
  7. VENA /00000402/ [Concomitant]
     Indication: ALLERGY PROPHYLAXIS
     Route: 048
     Dates: start: 20110727, end: 20110727
  8. NEOPHAGEN [Concomitant]
     Indication: LIVER DISORDER
     Route: 042
     Dates: start: 20110724, end: 20110805
  9. FENTANYL [Concomitant]
     Indication: PAIN
     Route: 062
     Dates: start: 20110723, end: 20110805
  10. ANPEC /00036303/ [Concomitant]
     Indication: PAIN
     Route: 054
     Dates: start: 20110723, end: 20110805

REACTIONS (4)
  - BONE MARROW FAILURE [None]
  - PNEUMONIA [None]
  - STOMATITIS [None]
  - DISSEMINATED INTRAVASCULAR COAGULATION [None]
